FAERS Safety Report 9236514 (Version 1)
Quarter: 2013Q2

REPORT INFORMATION
  Report Type: Spontaneous
  Country: US (occurrence: None)
  Receive Date: 20130415
  Receipt Date: 20130415
  Transmission Date: 20140414
  Serious: No
  Sender: FDA-Public Use
  Company Number: 2012US-004467

PATIENT
  Age: 39 Year
  Sex: Female
  Weight: 95.8 kg

DRUGS (11)
  1. OMONTYS (PEGINESATIDE) SOLUTION FOR INJECTION [Suspect]
     Dosage: 10 MG, Q 4 WEEKS, INTRAVENOUS
     Route: 042
     Dates: start: 20121109, end: 20121109
  2. VENOFER [Concomitant]
  3. ZEMPLAR (PARICALCITOL) [Concomitant]
  4. HEPARIN (HEPARIN) [Concomitant]
  5. CLONIDINE (CLONIDINE) [Concomitant]
  6. TUMS (CALCIUM CARBONATE, MAGNESIUM CARBONATE, MAGNESIUM TRISILICATE) [Concomitant]
  7. SODIUM BICARBONATE ATLANTIC (SODIUM BICARBONATE) [Concomitant]
  8. LABETALOL (LABETALOL) [Concomitant]
  9. CEPHALEXIN (CEFALEXIN) [Concomitant]
  10. LISINOPRIL (LISINOPRIL) [Concomitant]
  11. PHOSLO (CALCIUM ACETATE) [Concomitant]

REACTIONS (5)
  - Urticaria [None]
  - Pruritus [None]
  - Nausea [None]
  - Vomiting [None]
  - Hypertension [None]
